FAERS Safety Report 4313142-6 (Version None)
Quarter: 2004Q1

REPORT INFORMATION
  Report Type: 
  Country: None (occurrence: None)
  Receive Date: 20040304
  Receipt Date: 20040218
  Transmission Date: 20041129
  Serious: Yes (Death, Life-Threatening)
  Sender: FDA-Public Use
  Company Number: JP_031202426

PATIENT
  Age: 74 Year
  Sex: Female
  Weight: 46 kg

DRUGS (9)
  1. GEMZAR [Suspect]
     Indication: PANCREATIC CARCINOMA
     Dosage: 800 MG/OTHER
     Route: 050
     Dates: start: 20030610, end: 20030710
  2. HUMALOG [Suspect]
     Indication: DIABETES MELLITUS
     Dosage: 48 U/DAY
     Dates: start: 20030429, end: 20030725
  3. ISOPHANE INSULIN [Concomitant]
  4. ADALAT [Concomitant]
  5. NU LOTAN (LOSARTAN POTASSIUM) [Concomitant]
  6. FUROSEMIDE [Concomitant]
  7. TICLOPIDINE HCL [Concomitant]
  8. DOXAZOSIN MESYLATE [Concomitant]
  9. CEROCRAL (IFENPRODIL TARTRATE) [Concomitant]

REACTIONS (15)
  - ANAEMIA [None]
  - BLOOD GLUCOSE INCREASED [None]
  - C-REACTIVE PROTEIN INCREASED [None]
  - CARDIAC ARREST [None]
  - CARDIAC FAILURE [None]
  - CHEST PAIN [None]
  - CONDITION AGGRAVATED [None]
  - DIABETES MELLITUS [None]
  - LUNG INFILTRATION [None]
  - OEDEMA PERIPHERAL [None]
  - PLEURAL EFFUSION [None]
  - PULMONARY OEDEMA [None]
  - PYREXIA [None]
  - RENAL FAILURE [None]
  - STRIDOR [None]
